FAERS Safety Report 8090160-6 (Version None)
Quarter: 2012Q1

REPORT INFORMATION
  Report Type: 
  Country: None (occurrence: None)
  Receive Date: 20120129
  Receipt Date: 20111019
  Transmission Date: 20120608
  Serious: No
  Sender: FDA-Public Use
  Company Number: US-ABBOTT-11P-163-0866599-00

PATIENT
  Age: 61 Year
  Sex: Male

DRUGS (6)
  1. VITAMIN TAB [Concomitant]
     Indication: VITAMIN SUPPLEMENTATION
  2. VITAMIN B-12 [Concomitant]
     Indication: PRODUCT USED FOR UNKNOWN INDICATION
  3. ZOLOFT [Concomitant]
     Indication: ANXIETY
     Dosage: WEANING OFF DOSE
  4. IMURAN [Concomitant]
     Indication: CROHN'S DISEASE
  5. ZOLOFT [Concomitant]
     Indication: DEPRESSION
  6. HUMIRA [Suspect]
     Indication: CROHN'S DISEASE
     Dates: start: 20110701

REACTIONS (1)
  - FATIGUE [None]
